FAERS Safety Report 11897740 (Version 1)
Quarter: 2016Q1

REPORT INFORMATION
  Report Type: Spontaneous
  Country: US (occurrence: None)
  Receive Date: 20160106
  Receipt Date: 20160106
  Transmission Date: 20160526
  Serious: Yes (Other)
  Sender: FDA-Public Use
  Company Number: None

PATIENT
  Age: 60 Year
  Sex: Female
  Weight: 72.58 kg

DRUGS (10)
  1. LOTREL [Concomitant]
     Active Substance: AMLODIPINE BESYLATE\BENAZEPRIL HYDROCHLORIDE
  2. FLONASE [Concomitant]
     Active Substance: FLUTICASONE PROPIONATE
  3. BIOTIN [Concomitant]
     Active Substance: BIOTIN
  4. PROLIA [Suspect]
     Active Substance: DENOSUMAB
     Indication: VITAMIN D DECREASED
     Dosage: SHOT   EVERY 6 MONTHS
     Dates: start: 20141115, end: 20151117
  5. VITAMIN E [Concomitant]
     Active Substance: .ALPHA.-TOCOPHEROL
  6. MULTIPLE VITAMIN [Concomitant]
     Active Substance: VITAMINS
  7. CALCIUM WITH VITAMIN D3 [Concomitant]
     Active Substance: CALCIUM CARBONATE\CHOLECALCIFEROL
  8. EFFEXOR [Concomitant]
     Active Substance: VENLAFAXINE HYDROCHLORIDE
  9. IMITREX [Concomitant]
     Active Substance: SUMATRIPTAN SUCCINATE
  10. FLEXERIL [Concomitant]
     Active Substance: CYCLOBENZAPRINE HYDROCHLORIDE

REACTIONS (10)
  - Blister [None]
  - Skin disorder [None]
  - Rash [None]
  - Abdominal pain upper [None]
  - Pruritus [None]
  - Nausea [None]
  - Hypoaesthesia oral [None]
  - Lip blister [None]
  - Pneumonia [None]
  - Vomiting [None]

NARRATIVE: CASE EVENT DATE: 20151215
